FAERS Safety Report 8134572-0 (Version None)
Quarter: 2012Q1

REPORT INFORMATION
  Report Type: 
  Country: None (occurrence: None)
  Receive Date: 20120214
  Receipt Date: 20120211
  Transmission Date: 20120608
  Serious: No
  Sender: FDA-Public Use
  Company Number: US-PFIZER INC-2012037320

PATIENT
  Sex: Male

DRUGS (2)
  1. METHADONE HCL [Suspect]
     Dosage: UNK
  2. FLECTOR [Suspect]
     Indication: PAIN
     Dosage: UNK
     Route: 062
     Dates: start: 20120211

REACTIONS (3)
  - PAIN [None]
  - CIRCUMSTANCE OR INFORMATION CAPABLE OF LEADING TO MEDICATION ERROR [None]
  - DRUG INEFFECTIVE [None]
